FAERS Safety Report 7389352-0 (Version None)
Quarter: 2011Q2

REPORT INFORMATION
  Report Type: 
  Country: None (occurrence: None)
  Receive Date: 20110401
  Receipt Date: 20100621
  Transmission Date: 20111010
  Serious: Yes (Hospitalization)
  Sender: FDA-Public Use
  Company Number: B0662358A

PATIENT
  Sex: Female

DRUGS (1)
  1. VALACICLOVIR [Suspect]
     Indication: HERPES ZOSTER
     Dosage: 500MG PER DAY
     Route: 048
     Dates: start: 20091101

REACTIONS (5)
  - DEPRESSED LEVEL OF CONSCIOUSNESS [None]
  - POSTERIOR REVERSIBLE ENCEPHALOPATHY SYNDROME [None]
  - SPEECH DISORDER [None]
  - BRADYKINESIA [None]
  - SOMATOSENSORY EVOKED POTENTIALS ABNORMAL [None]
